FAERS Safety Report 7288235-4 (Version None)
Quarter: 2011Q1

REPORT INFORMATION
  Report Type: 
  Country: None (occurrence: None)
  Receive Date: 20110208
  Receipt Date: 20110208
  Transmission Date: 20110831
  Serious: No
  Sender: FDA-Public Use
  Company Number: None

PATIENT
  Sex: Female
  Weight: 90.9 kg

DRUGS (5)
  1. BENDAMUSTINE [Concomitant]
  2. CYCLOPHOSPHAMIDE [Suspect]
     Dosage: 14960 MG
  3. VINCRISTINE SULFATE [Suspect]
     Dosage: 16 MG
  4. PREDNISONE TAB [Suspect]
     Dosage: 6920 MG
  5. RITUXAN [Concomitant]

REACTIONS (3)
  - THROMBOCYTOPENIA [None]
  - ANAEMIA [None]
  - MYELODYSPLASTIC SYNDROME [None]
